FAERS Safety Report 12653618 (Version 2)
Quarter: 2016Q3

REPORT INFORMATION
  Report Type: Spontaneous
  Country: GR (occurrence: GR)
  Receive Date: 20160815
  Receipt Date: 20160816
  Transmission Date: 20161109
  Serious: No
  Sender: FDA-Public Use
  Company Number: GR-ROCHE-1812421

PATIENT
  Sex: Female

DRUGS (1)
  1. ROACTEMRA [Suspect]
     Active Substance: TOCILIZUMAB
     Indication: RHEUMATOID ARTHRITIS
     Route: 058
     Dates: start: 201605

REACTIONS (1)
  - Generalised oedema [Not Recovered/Not Resolved]
